FAERS Safety Report 20164779 (Version 2)
Quarter: 2022Q1

REPORT INFORMATION
  Report Type: Spontaneous
  Country: US (occurrence: US)
  Receive Date: 20211209
  Receipt Date: 20220202
  Transmission Date: 20220423
  Serious: Yes (Other)
  Sender: FDA-Public Use
  Company Number: US-BAYER-2021A263635

PATIENT
  Age: 36 Year
  Sex: Female
  Weight: 89.9 kg

DRUGS (3)
  1. MIRENA [Suspect]
     Active Substance: LEVONORGESTREL
     Indication: Contraception
     Dosage: 20?G/DAY
     Route: 015
     Dates: start: 20211119, end: 20211119
  2. MIRENA [Suspect]
     Active Substance: LEVONORGESTREL
     Indication: Abnormal uterine bleeding
  3. MIRENA [Suspect]
     Active Substance: LEVONORGESTREL
     Indication: Premenstrual syndrome

REACTIONS (9)
  - Uterine perforation [None]
  - Complication of device insertion [None]
  - Dizziness [None]
  - Procedural nausea [None]
  - Device physical property issue [None]
  - Post procedural discomfort [None]
  - Presyncope [None]
  - Vaginal haemorrhage [None]
  - Menstrual disorder [None]

NARRATIVE: CASE EVENT DATE: 20211119
